FAERS Safety Report 8416358-2 (Version None)
Quarter: 2012Q2

REPORT INFORMATION
  Report Type: 
  Country: None (occurrence: None)
  Receive Date: 20120606
  Receipt Date: 20120529
  Transmission Date: 20120825
  Serious: Yes (Other)
  Sender: FDA-Public Use
  Company Number: US-CELGENEUS-163-20785-12053408

PATIENT

DRUGS (7)
  1. THALOMID [Suspect]
     Indication: MULTIPLE MYELOMA
     Route: 048
  2. CYCLOPHOSPHAMIDE [Suspect]
     Indication: MULTIPLE MYELOMA
     Route: 065
  3. DEXAMETHASONE [Suspect]
     Indication: MULTIPLE MYELOMA
     Route: 065
  4. CARFILZOMIB [Suspect]
     Indication: MULTIPLE MYELOMA
     Route: 065
  5. CARFILZOMIB [Suspect]
     Dosage: 20/45 MG/M3
     Route: 065
  6. HERPES ZOSTER PROPHYLAXIS [Concomitant]
     Indication: INFECTION PROPHYLAXIS
     Route: 065
  7. ASPIRIN [Concomitant]
     Route: 065

REACTIONS (13)
  - CONSTIPATION [None]
  - BLOOD CREATININE INCREASED [None]
  - MYOPATHY [None]
  - LETHARGY [None]
  - MULTIPLE MYELOMA [None]
  - NEUTROPENIA [None]
  - THROMBOCYTOPENIA [None]
  - MALAISE [None]
  - FATIGUE [None]
  - SOMNOLENCE [None]
  - LYMPHOPENIA [None]
  - PERIPHERAL SENSORY NEUROPATHY [None]
  - EMBOLISM [None]
